FAERS Safety Report 5340806-8 (Version None)
Quarter: 2007Q2

REPORT INFORMATION
  Report Type: 
  Country: None (occurrence: None)
  Receive Date: 20070405
  Receipt Date: 20070125
  Transmission Date: 20071010
  Serious: Yes (Other)
  Sender: FDA-Public Use
  Company Number: US200701005018

PATIENT
  Age: 77 Year
  Sex: Female

DRUGS (2)
  1. CYMBALTA [Suspect]
     Indication: DEPRESSION
     Dosage: 20 MG, 2/D
     Dates: start: 20050101
  2. ANTIHYPERTENSIVES [Concomitant]

REACTIONS (3)
  - GLAUCOMA [None]
  - VISION BLURRED [None]
  - VISUAL DISTURBANCE [None]
